FAERS Safety Report 19700940 (Version 2)
Quarter: 2021Q3

REPORT INFORMATION
  Report Type: Report from Study
  Country: BR (occurrence: BR)
  Receive Date: 20210813
  Receipt Date: 20210826
  Transmission Date: 20211014
  Serious: Yes (Hospitalization, Other)
  Sender: FDA-Public Use
  Company Number: NVSC2021BR178964

PATIENT
  Age: 74 Year
  Sex: Female
  Weight: 73 kg

DRUGS (8)
  1. ULTIBRO BREEZHALER [Suspect]
     Active Substance: GLYCOPYRRONIUM\INDACATEROL
     Indication: LUNG DISORDER
     Dosage: 1 DF, QD (DOES NOT KNOW THE DOSE, FROM ABOUT 5 OR 6 YEARS TO 3 MONTHS LATER)
     Route: 055
  2. LOSARTAN. [Suspect]
     Active Substance: LOSARTAN
     Dosage: UNK, QD (04 TO 05 (AS REPORTED))
     Route: 048
     Dates: start: 202105
  3. ULTIBRO BREEZHALER [Suspect]
     Active Substance: GLYCOPYRRONIUM\INDACATEROL
     Indication: PNEUMONIA
     Dosage: 7 YEARS AGO
     Route: 065
  4. BRASART [Concomitant]
     Active Substance: VALSARTAN
     Indication: HYPERTENSION
     Dosage: 1 DF, QD (AFTER COVID?19)
     Route: 048
     Dates: start: 202105
  5. AZUKON [Concomitant]
     Active Substance: GLICLAZIDE
     Indication: DIABETES MELLITUS
     Dosage: 2 DF, QD (ABOUT 8 YEARS AGO)
     Route: 048
  6. ULTIBRO BREEZHALER [Suspect]
     Active Substance: GLYCOPYRRONIUM\INDACATEROL
     Dosage: 1 DF, QD (DOES NOT KNOW THE DOSE)
     Route: 055
     Dates: start: 202105
  7. LOSARTAN. [Suspect]
     Active Substance: LOSARTAN
     Indication: HYPERTENSION
     Dosage: 1 DF, QD (8 YEARS AGO, )
     Route: 048
     Dates: end: 202105
  8. GLIFAGE [Concomitant]
     Active Substance: METFORMIN HYDROCHLORIDE
     Indication: DIABETES MELLITUS
     Dosage: 2 DF, QD (ABOUT 3 YEARS AGO)
     Route: 048

REACTIONS (10)
  - Feeling abnormal [Unknown]
  - Fatigue [Unknown]
  - Drug ineffective [Recovered/Resolved]
  - COVID-19 [Unknown]
  - Peripheral swelling [Not Recovered/Not Resolved]
  - Malaise [Unknown]
  - Erythema [Recovered/Resolved]
  - Dysstasia [Recovered/Resolved]
  - Burning sensation [Not Recovered/Not Resolved]
  - Contusion [Recovered/Resolved]

NARRATIVE: CASE EVENT DATE: 202105
